FAERS Safety Report 12641765 (Version 2)
Quarter: 2017Q2

REPORT INFORMATION
  Report Type: Spontaneous
  Country: NZ (occurrence: NZ)
  Receive Date: 20160810
  Receipt Date: 20170407
  Transmission Date: 20170830
  Serious: Yes (Other)
  Sender: FDA-Public Use
  Company Number: NZ-BAYER-2016-152154

PATIENT
  Age: 35 Year
  Sex: Male

DRUGS (2)
  1. NEXAVAR [Suspect]
     Active Substance: SORAFENIB
     Indication: FIBROMATOSIS
     Dosage: UNK
     Route: 048
  2. NEXAVAR [Suspect]
     Active Substance: SORAFENIB
     Indication: FIBROMATOSIS
     Dosage: UNK
     Route: 048

REACTIONS (4)
  - Off label use [None]
  - General physical health deterioration [None]
  - Fibromatosis [None]
  - Pain [None]
